FAERS Safety Report 7371661-2 (Version None)
Quarter: 2011Q1

REPORT INFORMATION
  Report Type: 
  Country: None (occurrence: None)
  Receive Date: 20110324
  Receipt Date: 20101118
  Transmission Date: 20110831
  Serious: No
  Sender: FDA-Public Use
  Company Number: US-TYCO HEALTHCARE/MALLINCKRODT-T201002359

PATIENT
  Sex: Male

DRUGS (2)
  1. SOMA [Concomitant]
  2. ACETAMINOPHEN AND HYDROCODONE BITARTRATE [Suspect]
     Indication: BACK PAIN
     Dosage: 1 TAB, QID
     Route: 048
     Dates: start: 20101002, end: 20101016

REACTIONS (1)
  - HEADACHE [None]
